FAERS Safety Report 7249370-X (Version None)
Quarter: 2011Q1

REPORT INFORMATION
  Report Type: 
  Country: None (occurrence: None)
  Receive Date: 20110128
  Receipt Date: 20101130
  Transmission Date: 20110831
  Serious: Yes (Hospitalization, Other)
  Sender: FDA-Public Use
  Company Number: US-BAYER-201024389NA

PATIENT
  Sex: Female

DRUGS (8)
  1. AMERGE [Concomitant]
     Indication: MIGRAINE
     Dosage: UNK
     Dates: start: 20000101, end: 20100101
  2. YASMIN [Suspect]
     Indication: MENSTRUAL CYCLE MANAGEMENT
  3. YASMIN [Suspect]
     Indication: ACNE
     Dosage: UNK UNK, QD
     Route: 048
     Dates: start: 20011001, end: 20020901
  4. YASMIN [Suspect]
     Indication: PREMENSTRUAL SYNDROME
  5. PHENERGAN [Concomitant]
     Dosage: UNK
     Dates: start: 20021001
  6. IBUPROFEN [Concomitant]
     Indication: CHEST PAIN
     Dosage: 800 MG, UNK
  7. ANZEMET [Concomitant]
     Dosage: UNK
     Dates: start: 20021001
  8. NSAID'S [Concomitant]
     Dosage: UNK
     Dates: start: 19730101

REACTIONS (2)
  - PLEURITIC PAIN [None]
  - PULMONARY EMBOLISM [None]
